FAERS Safety Report 21121615 (Version 26)
Quarter: 2025Q1

REPORT INFORMATION
  Report Type: Report from Study
  Country: IE (occurrence: IE)
  Receive Date: 20220722
  Receipt Date: 20250328
  Transmission Date: 20250409
  Serious: Yes (Hospitalization, Other)
  Sender: TAKEDA
  Company Number: IE-TAKEDA-2022TUS049329

PATIENT
  Age: 70 Year
  Sex: Female

DRUGS (10)
  1. HUMAN IMMUNOGLOBULIN G [Suspect]
     Active Substance: HUMAN IMMUNOGLOBULIN G
     Indication: Paraneoplastic syndrome
     Dosage: 35 MILLIGRAM, Q6WEEKS
     Dates: start: 20210222
  2. HUMAN IMMUNOGLOBULIN G [Suspect]
     Active Substance: HUMAN IMMUNOGLOBULIN G
     Indication: Breast cancer recurrent
     Dosage: 35 MILLIGRAM, Q8WEEKS
  3. HUMAN IMMUNOGLOBULIN G [Suspect]
     Active Substance: HUMAN IMMUNOGLOBULIN G
     Dosage: 35 GRAM, Q8WEEKS
  4. HUMAN IMMUNOGLOBULIN G [Suspect]
     Active Substance: HUMAN IMMUNOGLOBULIN G
     Dosage: 35 MILLIGRAM, 1/WEEK
     Dates: start: 20210922
  5. HUMAN IMMUNOGLOBULIN G [Suspect]
     Active Substance: HUMAN IMMUNOGLOBULIN G
     Dosage: 35 GRAM, Q6WEEKS
  6. HUMAN IMMUNOGLOBULIN G [Suspect]
     Active Substance: HUMAN IMMUNOGLOBULIN G
     Dosage: 35 GRAM, Q6WEEKS
  7. HUMAN IMMUNOGLOBULIN G [Suspect]
     Active Substance: HUMAN IMMUNOGLOBULIN G
     Dosage: 35 GRAM, Q3WEEKS
  8. HUMAN IMMUNOGLOBULIN G [Suspect]
     Active Substance: HUMAN IMMUNOGLOBULIN G
     Dosage: 35 GRAM, 3/WEEK
  9. HUMAN IMMUNOGLOBULIN G [Suspect]
     Active Substance: HUMAN IMMUNOGLOBULIN G
     Dosage: 35 GRAM, Q3WEEKS
  10. INFLUENZA VIRUS VACCINE [Suspect]
     Active Substance: INFLUENZA VIRUS VACCINE
     Indication: Product used for unknown indication

REACTIONS (23)
  - Speech disorder [Unknown]
  - Lower respiratory tract infection [Recovering/Resolving]
  - Contusion [Unknown]
  - Sepsis [Not Recovered/Not Resolved]
  - Cellulitis [Not Recovered/Not Resolved]
  - Urinary tract infection [Recovering/Resolving]
  - Fall [Unknown]
  - Pneumonia [Recovered/Resolved]
  - Kidney infection [Recovering/Resolving]
  - Device alarm issue [Unknown]
  - Feeling jittery [Not Recovered/Not Resolved]
  - Product use issue [Unknown]
  - Malaise [Recovering/Resolving]
  - Infusion site swelling [Recovered/Resolved]
  - Tremor [Recovering/Resolving]
  - Poor venous access [Recovered/Resolved]
  - Skin ulcer [Recovered/Resolved]
  - Infected skin ulcer [Recovered/Resolved]
  - Product use in unapproved indication [Unknown]
  - Oropharyngeal pain [Not Recovered/Not Resolved]
  - Pyrexia [Not Recovered/Not Resolved]
  - Nausea [Recovered/Resolved]
  - Inappropriate schedule of product administration [Not Recovered/Not Resolved]

NARRATIVE: CASE EVENT DATE: 20210222
